FAERS Safety Report 17272924 (Version 3)
Quarter: 2020Q1

REPORT INFORMATION
  Report Type: Report from Study
  Country: IN (occurrence: IN)
  Receive Date: 20200115
  Receipt Date: 20200127
  Transmission Date: 20200409
  Serious: Yes (Hospitalization)
  Sender: FDA-Public Use
  Company Number: IN-AMGEN-INDCT2019156026

PATIENT
  Age: 62 Year
  Sex: Male
  Weight: 71.2 kg

DRUGS (14)
  1. PARACETAMOL [Concomitant]
     Active Substance: ACETAMINOPHEN
     Dosage: 10 MICROGRAM
     Route: 042
     Dates: start: 20190727, end: 20190727
  2. CALCITAB [CALCIUM CARBONATE;COLECALCIFEROL] [Concomitant]
     Dosage: 500 MILLIGRAM
     Route: 048
     Dates: start: 20180908
  3. SUPERMET XL [Concomitant]
     Dosage: 50 MILLIGRAM
     Route: 048
     Dates: start: 20151202
  4. VANCOMYCIN [Concomitant]
     Active Substance: VANCOMYCIN
     Dosage: 1 GRAM
     Route: 042
     Dates: start: 20190727, end: 20190727
  5. ACETAMINOPHEN. [Concomitant]
     Active Substance: ACETAMINOPHEN
     Dosage: 650 MILLIGRAM AND 60 MICROGRAM
     Route: 048
     Dates: start: 20190722, end: 20190910
  6. ISOFER [IRON ISOMALTOSIDE 1000] [Concomitant]
     Dosage: 100 MILLIGRAM
     Route: 042
     Dates: start: 20180908
  7. NOVORAPID [Concomitant]
     Active Substance: INSULIN ASPART
     Dosage: 10 UNK
     Route: 058
     Dates: start: 20180905
  8. ETELCALCETIDE [Suspect]
     Active Substance: ETELCALCETIDE
     Indication: HYPERPARATHYROIDISM SECONDARY
     Dosage: UNK
     Route: 065
     Dates: start: 20190318
  9. TAXIM-O [Concomitant]
     Active Substance: CEFIXIME
     Dosage: 100 MILLIGRAM
     Route: 048
     Dates: start: 20190907, end: 20190912
  10. LIPICARE [Concomitant]
     Dosage: 10 MILLIGRAM
     Route: 048
     Dates: start: 20181006
  11. NICARDIA [Concomitant]
     Active Substance: NIFEDIPINE
     Dosage: 10-20 MILLIGRAM
     Route: 048
     Dates: start: 20151228
  12. CRESP [Concomitant]
     Dosage: 40 MILLIGRAM
     Route: 058
     Dates: start: 20181006
  13. AVIL [PHENIRAMINE MALEATE] [Concomitant]
     Dosage: 2 MICROGRAM AND 2 MILLILITER
     Route: 042
     Dates: start: 20190722, end: 20190907
  14. AMIKACIN. [Concomitant]
     Active Substance: AMIKACIN
     Dosage: 500 MICROGRAM
     Route: 042
     Dates: start: 20190727, end: 20190727

REACTIONS (3)
  - Hypertension [Recovered/Resolved]
  - Dyspnoea [Recovered/Resolved]
  - Cough [Recovered/Resolved]

NARRATIVE: CASE EVENT DATE: 20190918
